FAERS Safety Report 14165929 (Version 1)
Quarter: 2017Q4

REPORT INFORMATION
  Report Type: Spontaneous
  Country: US (occurrence: US)
  Receive Date: 20171106
  Receipt Date: 20171106
  Transmission Date: 20180321
  Serious: No
  Sender: FDA-Public Use
  Company Number: None

PATIENT
  Sex: Male

DRUGS (4)
  1. IBUPROFEN. [Suspect]
     Active Substance: IBUPROFEN
  2. DILAUDID [Suspect]
     Active Substance: HYDROMORPHONE HYDROCHLORIDE
  3. OXYMORPHONE [Suspect]
     Active Substance: OXYMORPHONE
  4. TYLENOL [Suspect]
     Active Substance: ACETAMINOPHEN

REACTIONS (1)
  - Unevaluable event [None]
